FAERS Safety Report 13082239 (Version 3)
Quarter: 2017Q1

REPORT INFORMATION
  Report Type: Spontaneous
  Country: DK (occurrence: DK)
  Receive Date: 20170103
  Receipt Date: 20170202
  Transmission Date: 20170428
  Serious: Yes (Other)
  Sender: FDA-Public Use
  Company Number: DK-ACORDA-ACO_131385_2016

PATIENT
  Sex: Male

DRUGS (1)
  1. QUTENZA [Suspect]
     Active Substance: CAPSAICIN
     Indication: NEURALGIA
     Dosage: UNK, UNKNOWN FREQ.
     Route: 003
     Dates: start: 20161115, end: 20161115

REACTIONS (4)
  - Drug hypersensitivity [Recovered/Resolved]
  - Application site pain [Recovered/Resolved]
  - Pruritus generalised [Recovering/Resolving]
  - Erythema [Unknown]

NARRATIVE: CASE EVENT DATE: 20161115
